FAERS Safety Report 8462317-3 (Version None)
Quarter: 2012Q2

REPORT INFORMATION
  Report Type: 
  Country: None (occurrence: None)
  Receive Date: 20120625
  Receipt Date: 20120619
  Transmission Date: 20120825
  Serious: No
  Sender: FDA-Public Use
  Company Number: US-PFIZER INC-2012147485

PATIENT
  Sex: Male
  Weight: 108.84 kg

DRUGS (3)
  1. LYRICA [Suspect]
     Indication: PAIN IN EXTREMITY
     Dosage: UNK
     Dates: start: 20120601
  2. DEXILANT [Concomitant]
     Indication: ABDOMINAL DISCOMFORT
     Dosage: 30 MG, DAILY
  3. CELEBREX [Concomitant]
     Indication: ARTHRALGIA
     Dosage: 200 MG, DAILY

REACTIONS (3)
  - PHARYNGEAL OEDEMA [None]
  - SWOLLEN TONGUE [None]
  - HEADACHE [None]
